FAERS Safety Report 5674959-9 (Version None)
Quarter: 2008Q1

REPORT INFORMATION
  Report Type: 
  Country: None (occurrence: None)
  Receive Date: 20080320
  Receipt Date: 20080310
  Transmission Date: 20080703
  Serious: Yes (Other)
  Sender: FDA-Public Use
  Company Number: US-PFIZER INC-2007097407

PATIENT
  Sex: Female
  Weight: 91.2 kg

DRUGS (9)
  1. LIPITOR [Suspect]
     Indication: HYPERLIPIDAEMIA
     Route: 048
  2. LIPITOR [Suspect]
     Indication: BLOOD CHOLESTEROL
  3. NIASPAN [Concomitant]
  4. ASPIRIN [Concomitant]
  5. LEVOXYL [Concomitant]
  6. KLONOPIN [Concomitant]
  7. DAYPRO [Concomitant]
  8. PERCOCET [Concomitant]
  9. AMBIEN [Concomitant]

REACTIONS (10)
  - CONTUSION [None]
  - GAIT DISTURBANCE [None]
  - JOINT SWELLING [None]
  - MUSCLE SPASMS [None]
  - MYALGIA [None]
  - OEDEMA PERIPHERAL [None]
  - PAIN [None]
  - PAIN IN EXTREMITY [None]
  - THERAPEUTIC PROCEDURE [None]
  - WEIGHT INCREASED [None]
